FAERS Safety Report 8018679-4 (Version None)
Quarter: 2012Q1

REPORT INFORMATION
  Report Type: 
  Country: None (occurrence: None)
  Receive Date: 20120103
  Receipt Date: 20120103
  Transmission Date: 20120608
  Serious: Yes (Other)
  Sender: FDA-Public Use
  Company Number: None

PATIENT
  Age: 53 Year
  Sex: Female
  Weight: 60 kg

DRUGS (1)
  1. CHANTIX [Suspect]
     Indication: SMOKING CESSATION THERAPY
     Dosage: 1MG
     Route: 048
     Dates: start: 20111201, end: 20111230

REACTIONS (6)
  - MYALGIA [None]
  - NAUSEA [None]
  - ARTHRALGIA [None]
  - ABASIA [None]
  - INSOMNIA [None]
  - ABDOMINAL DISTENSION [None]
